FAERS Safety Report 25096741 (Version 1)
Quarter: 2025Q1

REPORT INFORMATION
  Report Type: Spontaneous
  Country: US (occurrence: None)
  Receive Date: 20250319
  Receipt Date: 20250319
  Transmission Date: 20250408
  Serious: Yes (Hospitalization)
  Sender: FDA-CTU
  Company Number: None

PATIENT
  Age: 14 Year
  Sex: Female
  Weight: 63.05 kg

DRUGS (3)
  1. NEXPLANON [Suspect]
     Active Substance: ETONOGESTREL
  2. VITAMIN D [Suspect]
     Active Substance: VITAMIN D NOS
  3. VITAMIN B2 [Suspect]
     Active Substance: RIBOFLAVIN

REACTIONS (10)
  - Headache [None]
  - Vomiting [None]
  - Flank pain [None]
  - Biliary colic [None]
  - Loss of consciousness [None]
  - Muscular weakness [None]
  - Anxiety [None]
  - Hallucination [None]
  - Abdominal pain [None]
  - Dehydration [None]

NARRATIVE: CASE EVENT DATE: 20250314
